FAERS Safety Report 21982583 (Version 2)
Quarter: 2023Q1

REPORT INFORMATION
  Report Type: Spontaneous
  Country: US (occurrence: US)
  Receive Date: 20230213
  Receipt Date: 20230215
  Transmission Date: 20230418
  Serious: No
  Sender: FDA-Public Use
  Company Number: US-ELI_LILLY_AND_COMPANY-US202301008817

PATIENT
  Sex: Female

DRUGS (1)
  1. EMGALITY [Suspect]
     Active Substance: GALCANEZUMAB-GNLM
     Indication: Product used for unknown indication
     Dosage: UNK, UNKNOWN
     Route: 065

REACTIONS (7)
  - Pain [Unknown]
  - Hypoacusis [Unknown]
  - Feeling abnormal [Unknown]
  - Dysarthria [Unknown]
  - Malaise [Unknown]
  - Fatigue [Unknown]
  - Hyperaesthesia [Unknown]
